FAERS Safety Report 17082811 (Version 1)
Quarter: 2019Q4

REPORT INFORMATION
  Report Type: Spontaneous
  Country: US (occurrence: US)
  Receive Date: 20191127
  Receipt Date: 20191127
  Transmission Date: 20200122
  Serious: Yes (Other)
  Sender: FDA-Public Use
  Company Number: US-PFIZER INC-2019483503

PATIENT
  Age: 61 Year

DRUGS (1)
  1. SKELAXIN [Suspect]
     Active Substance: METAXALONE
     Dosage: 0.5 DF, EVERY 4 HRS

REACTIONS (2)
  - Off label use [Unknown]
  - Rotator cuff syndrome [Unknown]
